FAERS Safety Report 6702270-3 (Version None)
Quarter: 2010Q2

REPORT INFORMATION
  Report Type: 
  Country: None (occurrence: None)
  Receive Date: 20100429
  Receipt Date: 20100420
  Transmission Date: 20101027
  Serious: Yes (Hospitalization)
  Sender: FDA-Public Use
  Company Number: NO-B.I. PHARMACEUTICALS,INC./RIDGEFIELD-2010-SW-00116NO

PATIENT
  Age: 35 Year
  Sex: Female

DRUGS (5)
  1. PRAMIPEXOLE DIHYDROCHLORIDE [Suspect]
     Indication: MIGRAINE PROPHYLAXIS
  2. CANDESARTAN [Suspect]
     Indication: MIGRAINE PROPHYLAXIS
     Dosage: 16 MG
  3. AMITRIPTYLINE [Suspect]
     Indication: MIGRAINE PROPHYLAXIS
     Dosage: 25 MG
  4. METOCLOPRAMIDE HYDROCHLORIDE [Concomitant]
     Indication: MIGRAINE
  5. ZOLMITRIPTAN [Concomitant]
     Indication: MIGRAINE

REACTIONS (3)
  - ABORTION [None]
  - DRUG EXPOSURE DURING PREGNANCY [None]
  - OLIGOHYDRAMNIOS [None]
